FAERS Safety Report 12818798 (Version 1)
Quarter: 2016Q4

REPORT INFORMATION
  Report Type: Spontaneous
  Country: US (occurrence: US)
  Receive Date: 20161006
  Receipt Date: 20161006
  Transmission Date: 20170207
  Serious: No
  Sender: FDA-Public Use
  Company Number: None

PATIENT
  Age: 72 Year
  Sex: Male

DRUGS (1)
  1. LOSARTAN. [Suspect]
     Active Substance: LOSARTAN
     Indication: HYPERTENSION
     Route: 048
     Dates: start: 20160923, end: 20161006

REACTIONS (3)
  - Blood pressure inadequately controlled [None]
  - Product substitution issue [None]
  - Blood pressure systolic increased [None]

NARRATIVE: CASE EVENT DATE: 20160929
